FAERS Safety Report 24747902 (Version 3)
Quarter: 2025Q1

REPORT INFORMATION
  Report Type: Spontaneous
  Country: US (occurrence: US)
  Receive Date: 20241218
  Receipt Date: 20250217
  Transmission Date: 20250408
  Serious: No
  Sender: Harrow Health
  Company Number: US-IMP-2024001140

PATIENT
  Sex: Female

DRUGS (1)
  1. VEVYE [Suspect]
     Active Substance: CYCLOSPORINE
     Indication: Product used for unknown indication
     Route: 047
     Dates: start: 20241125, end: 20241125

REACTIONS (4)
  - Drug hypersensitivity [Unknown]
  - Eye irritation [Recovered/Resolved]
  - Product delivery mechanism issue [Unknown]
  - Incorrect dose administered by product [Unknown]
